FAERS Safety Report 10618038 (Version 4)
Quarter: 2015Q1

REPORT INFORMATION
  Report Type: Spontaneous
  Country: US (occurrence: US)
  Receive Date: 20141202
  Receipt Date: 20150204
  Transmission Date: 20150720
  Serious: No
  Sender: FDA-Public Use
  Company Number: US-009507513-2011SP009568

PATIENT
  Age: 81 Year
  Sex: Female

DRUGS (3)
  1. LORATADINE. [Concomitant]
     Active Substance: LORATADINE
     Dosage: UNK
     Dates: start: 2010
  2. ASMANEX [Suspect]
     Active Substance: MOMETASONE FUROATE
     Indication: HYPERSENSITIVITY
  3. ASMANEX [Suspect]
     Active Substance: MOMETASONE FUROATE
     Indication: ASTHMA
     Dosage: 220 MCG,ONE PUFF IN THE MORNING, ONE AT NIGHT
     Route: 055
     Dates: start: 2010

REACTIONS (7)
  - Nasal congestion [Not Recovered/Not Resolved]
  - Nasal congestion [Not Recovered/Not Resolved]
  - Speech disorder [Not Recovered/Not Resolved]
  - Product quality issue [Unknown]
  - Incorrect dose administered [Unknown]
  - Chronic throat clearing [Unknown]
  - Underdose [Unknown]

NARRATIVE: CASE EVENT DATE: 201101
